FAERS Safety Report 6102574-1 (Version None)
Quarter: 2009Q1

REPORT INFORMATION
  Report Type: 
  Country: None (occurrence: None)
  Receive Date: 20090304
  Receipt Date: 20080904
  Transmission Date: 20090719
  Serious: No
  Sender: FDA-Public Use
  Company Number: A0745941A

PATIENT
  Age: 53 Year
  Sex: Male

DRUGS (7)
  1. REQUIP [Suspect]
     Indication: PARKINSON'S DISEASE
     Dosage: 3MG THREE TIMES PER DAY
     Route: 048
     Dates: start: 20080201, end: 20080701
  2. KLONOPIN [Concomitant]
  3. ZOLOFT [Concomitant]
  4. VOLTAREN [Concomitant]
  5. VICODIN [Concomitant]
  6. ZOCOR [Concomitant]
  7. FLEXERIL [Concomitant]

REACTIONS (7)
  - AMNESIA [None]
  - ASTHENIA [None]
  - CONFUSIONAL STATE [None]
  - DYSPHEMIA [None]
  - FATIGUE [None]
  - HEADACHE [None]
  - TREMOR [None]
